FAERS Safety Report 17417955 (Version 1)
Quarter: 2020Q1

REPORT INFORMATION
  Report Type: Other
  Country: DE (occurrence: DE)
  Receive Date: 20200214
  Receipt Date: 20200214
  Transmission Date: 20200409
  Serious: Yes (Other)
  Sender: FDA-Public Use
  Company Number: DE-MACLEODS PHARMACEUTICALS US LTD-MAC2020025103

PATIENT

DRUGS (1)
  1. LEVOFLOXACIN TABLET [Suspect]
     Active Substance: LEVOFLOXACIN
     Indication: PRODUCT USED FOR UNKNOWN INDICATION
     Dosage: TABLET
     Route: 048

REACTIONS (12)
  - Nervous system disorder [Unknown]
  - Clostridial infection [Recovered/Resolved]
  - Ocular discomfort [Not Recovered/Not Resolved]
  - Burning sensation [Not Recovered/Not Resolved]
  - Vitreous floaters [Not Recovered/Not Resolved]
  - Tendonitis [Not Recovered/Not Resolved]
  - Palpitations [Unknown]
  - Neuralgia [Unknown]
  - Extrasystoles [Unknown]
  - Somnolence [Unknown]
  - Eye disorder [Not Recovered/Not Resolved]
  - Paraesthesia [Recovered/Resolved]
